FAERS Safety Report 18465580 (Version 1)
Quarter: 2020Q4

REPORT INFORMATION
  Report Type: Spontaneous
  Country: PT (occurrence: PT)
  Receive Date: 20201105
  Receipt Date: 20201105
  Transmission Date: 20210114
  Serious: No
  Sender: FDA-Public Use
  Company Number: PT-LUPIN PHARMACEUTICALS INC.-2020-03380

PATIENT
  Sex: Female

DRUGS (6)
  1. ESTRADIOL. [Suspect]
     Active Substance: ESTRADIOL
     Indication: HORMONE REPLACEMENT THERAPY
     Dosage: UNK (HAD BEEN RECEIVING FOR 17 YEARS)
     Route: 065
  2. ESTRADIOL. [Suspect]
     Active Substance: ESTRADIOL
     Indication: STEROID THERAPY
  3. NORETHISTERONE [Suspect]
     Active Substance: NORETHINDRONE
     Indication: HORMONE REPLACEMENT THERAPY
     Dosage: UNK (HAD BEEN RECEIVING FOR 17 YEARS)
     Route: 065
  4. GESTODENE [Suspect]
     Active Substance: GESTODENE
     Indication: STEROID THERAPY
  5. NORETHISTERONE [Suspect]
     Active Substance: NORETHINDRONE
     Indication: STEROID THERAPY
  6. GESTODENE [Suspect]
     Active Substance: GESTODENE
     Indication: HORMONE REPLACEMENT THERAPY
     Dosage: UNK (HAD BEEN RECEIVING FOR 17 YEARS)
     Route: 065

REACTIONS (1)
  - Phlebitis [Unknown]
